FAERS Safety Report 21021646 (Version 1)
Quarter: 2022Q2

REPORT INFORMATION
  Report Type: Spontaneous
  Country: CN (occurrence: CN)
  Receive Date: 20220629
  Receipt Date: 20220629
  Transmission Date: 20220720
  Serious: Yes (Other)
  Sender: FDA-Public Use
  Company Number: None

PATIENT
  Age: 56 Year
  Sex: Female
  Weight: 72 kg

DRUGS (8)
  1. CYCLOPHOSPHAMIDE [Suspect]
     Active Substance: CYCLOPHOSPHAMIDE
     Indication: Breast cancer female
     Dosage: CYCLOPHOSPHAMIDE FOR INJECTION [ENDOXAN] 1.05G + 0.9% SODIUM CHLORIDE INJECTION [MINSHENG] 100ML IVG
     Route: 041
     Dates: start: 20220503, end: 20220503
  2. CYCLOPHOSPHAMIDE [Suspect]
     Active Substance: CYCLOPHOSPHAMIDE
     Dosage: DOSE RE-INTRODUCED, CYCLOPHOSPHAMIDE
     Route: 041
  3. SODIUM CHLORIDE [Suspect]
     Active Substance: SODIUM CHLORIDE
     Indication: Medication dilution
     Dosage: CYCLOPHOSPHAMIDE FOR INJECTION [ENDOXAN] 1.05G + 0.9% SODIUM CHLORIDE INJECTION [MINSHENG] 100ML
     Route: 041
     Dates: start: 20220503, end: 20220503
  4. SODIUM CHLORIDE [Suspect]
     Active Substance: SODIUM CHLORIDE
     Dosage: DOSE RE-INTRODUCED, CYCLOPHOSPHAMIDE
     Route: 041
  5. SODIUM CHLORIDE [Suspect]
     Active Substance: SODIUM CHLORIDE
     Dosage: EPIRUBICIN FOR INJECTION [PHARMORUBICIN] 150MG + 0.9% SODIUM CHLORIDE INJECTION [MINSHENG] 100ML IVG
     Route: 041
     Dates: start: 20220503, end: 20220503
  6. SODIUM CHLORIDE [Suspect]
     Active Substance: SODIUM CHLORIDE
     Dosage: DOSE-REINTRODUCED, EPIRUBICIN HYDROCHLORIDE
     Route: 041
  7. EPIRUBICIN [Suspect]
     Active Substance: EPIRUBICIN
     Indication: Breast cancer female
     Dosage: EPIRUBICIN FOR INJECTION [PHARMORUBICIN] 150MG + 0.9% SODIUM CHLORIDE INJECTION [MINSHENG] 100ML
     Route: 041
     Dates: start: 20220503, end: 20220503
  8. EPIRUBICIN [Suspect]
     Active Substance: EPIRUBICIN
     Dosage: DOSE RE-INTRODUCED, PHARMORUBICIN
     Route: 041

REACTIONS (3)
  - Agranulocytosis [Recovering/Resolving]
  - Pyrexia [Recovering/Resolving]
  - Body temperature increased [Recovering/Resolving]

NARRATIVE: CASE EVENT DATE: 20220513
